FAERS Safety Report 6128963-7 (Version None)
Quarter: 2009Q1

REPORT INFORMATION
  Report Type: 
  Country: None (occurrence: None)
  Receive Date: 20090324
  Receipt Date: 20090316
  Transmission Date: 20090719
  Serious: Yes (Other)
  Sender: FDA-Public Use
  Company Number: PHEH2009US02251

PATIENT
  Sex: Female

DRUGS (11)
  1. SANDOSTATIN LAR [Suspect]
     Dosage: UNK
  2. SANDOSTATIN [Suspect]
     Dosage: 50MCG THREE TIMES DAILY
     Route: 058
  3. CELEBREX [Concomitant]
  4. VITAMIN D [Concomitant]
  5. RANITIDINE [Concomitant]
  6. ATENOLOL [Concomitant]
  7. LORTAB [Concomitant]
  8. TEMAZEPAM [Concomitant]
  9. MULTI-VITAMINS [Concomitant]
  10. CALCIUM [Concomitant]
  11. MAXZIDE [Concomitant]

REACTIONS (1)
  - NEPHROLITHIASIS [None]
